FAERS Safety Report 13585078 (Version 1)
Quarter: 2017Q2

REPORT INFORMATION
  Report Type: Spontaneous
  Country: US (occurrence: US)
  Receive Date: 20170526
  Receipt Date: 20170526
  Transmission Date: 20170830
  Serious: No
  Sender: FDA-Public Use
  Company Number: US-BAYER-2017-096500

PATIENT
  Age: 34 Year
  Sex: Female

DRUGS (2)
  1. ALEVE [Suspect]
     Active Substance: NAPROXEN SODIUM
     Indication: PAIN
     Dosage: 2 DF, UNK
     Route: 048
     Dates: start: 20170517
  2. ALEVE [Suspect]
     Active Substance: NAPROXEN SODIUM
     Indication: PYREXIA

REACTIONS (2)
  - Genital swelling [Unknown]
  - Pruritus genital [Unknown]

NARRATIVE: CASE EVENT DATE: 20170517
